FAERS Safety Report 10332476 (Version 1)
Quarter: 2014Q3

REPORT INFORMATION
  Report Type: Spontaneous
  Country: US (occurrence: US)
  Receive Date: 20140722
  Receipt Date: 20140722
  Transmission Date: 20150326
  Serious: No
  Sender: FDA-Public Use
  Company Number: US-ASTRAZENECA-2013SE53446

PATIENT
  Age: 93 Year
  Sex: Female
  Weight: 55.3 kg

DRUGS (1)
  1. SEROQUEL [Suspect]
     Active Substance: QUETIAPINE FUMARATE
     Route: 048
     Dates: start: 201101

REACTIONS (3)
  - Off label use [Unknown]
  - Decreased activity [Unknown]
  - Somnolence [Unknown]
